FAERS Safety Report 7357317-0 (Version None)
Quarter: 2011Q1

REPORT INFORMATION
  Report Type: 
  Country: None (occurrence: None)
  Receive Date: 20110308
  Receipt Date: 20110223
  Transmission Date: 20110831
  Serious: Yes (Hospitalization, Other)
  Sender: FDA-Public Use
  Company Number: 837785

PATIENT
  Age: 80 Year
  Sex: Male
  Weight: 89.7 kg

DRUGS (5)
  1. ONDANSETRON [Concomitant]
  2. EMEND [Concomitant]
  3. DEXAMETHASONE [Concomitant]
  4. METHOTREXATE [Suspect]
     Indication: CENTRAL NERVOUS SYSTEM LYMPHOMA
     Dosage: 10,800 MG, X 1, INTRAVENOUS DRIP
     Route: 041
     Dates: start: 20110219, end: 20110219
  5. RITUXAN [Concomitant]

REACTIONS (3)
  - HYPOPHOSPHATAEMIA [None]
  - CREATININE RENAL CLEARANCE DECREASED [None]
  - HYPOCALCAEMIA [None]
